FAERS Safety Report 5264430-0 (Version None)
Quarter: 2007Q1

REPORT INFORMATION
  Report Type: 
  Country: None (occurrence: None)
  Receive Date: 20070309
  Receipt Date: 20070223
  Transmission Date: 20070707
  Serious: Yes (Other)
  Sender: FDA-Public Use
  Company Number: PAR_1391_2007

PATIENT
  Age: 87 Year
  Sex: Male

DRUGS (5)
  1. TEMAZEPAM [Suspect]
     Indication: INSOMNIA
     Dosage: 7.5 MG QHS
  2. TEMAZEPAM [Suspect]
     Dosage: 7.5 MG NIGHTLY
  3. ALBUTEROL [Concomitant]
  4. ASPIRIN [Concomitant]
  5. IRON SULFATETHIAMIN COMPOUND TAB [Concomitant]

REACTIONS (1)
  - HALLUCINATION, VISUAL [None]
